FAERS Safety Report 20446977 (Version 1)
Quarter: 2022Q1

REPORT INFORMATION
  Report Type: Spontaneous
  Country: CZ (occurrence: CZ)
  Receive Date: 20220209
  Receipt Date: 20220209
  Transmission Date: 20220423
  Serious: Yes (Other)
  Sender: FDA-Public Use
  Company Number: CZ-PFM-2022-00576

PATIENT
  Age: 53 Year
  Sex: Female

DRUGS (4)
  1. LOPERAMIDE [Suspect]
     Active Substance: LOPERAMIDE
     Indication: Prophylaxis against diarrhoea
     Dosage: UNK
     Route: 048
     Dates: start: 202104
  2. NERLYNX [Suspect]
     Active Substance: NERATINIB
     Indication: Product used for unknown indication
     Dosage: 200 MG/DAY (AFTER TWO WEEKS)
     Route: 048
  3. NERLYNX [Suspect]
     Active Substance: NERATINIB
     Indication: Breast cancer
     Dosage: 160 MILLIGRAM/DAY (FIRST TWO WEEKS)
     Route: 048
     Dates: start: 202104
  4. NERLYNX [Suspect]
     Active Substance: NERATINIB
     Dosage: 160 MILLIGRAM/DAY
     Route: 065

REACTIONS (7)
  - Skin toxicity [Recovering/Resolving]
  - Asthenia [Recovered/Resolved]
  - Off label use [Unknown]
  - Product use issue [Unknown]
  - Prescribed underdose [Unknown]
  - Dyspnoea [Recovered/Resolved]
  - Diarrhoea [Recovered/Resolved]

NARRATIVE: CASE EVENT DATE: 20210101
